FAERS Safety Report 6651746 (Version 12)
Quarter: 2015Q1

REPORT INFORMATION
  Report Type: Spontaneous
  Country: US (occurrence: US)
  Receive Date: 20080529
  Receipt Date: 20150120
  Transmission Date: 20150721
  Serious: Yes (Hospitalization, Other)
  Sender: FDA-Public Use
  Company Number: US-ROCHE-549219

PATIENT
  Age: 15 Year
  Sex: Female

DRUGS (3)
  1. ACCUTANE [Suspect]
     Active Substance: ISOTRETINOIN
     Route: 065
     Dates: start: 19901218, end: 19910217
  2. ACCUTANE [Suspect]
     Active Substance: ISOTRETINOIN
     Indication: ACNE
     Route: 065
     Dates: start: 19901128, end: 19901217
  3. ACCUTANE [Suspect]
     Active Substance: ISOTRETINOIN
     Route: 065
     Dates: start: 19910218, end: 19910218

REACTIONS (17)
  - Anaemia [Unknown]
  - Blood cholesterol increased [Unknown]
  - Colitis ulcerative [Not Recovered/Not Resolved]
  - Intestinal obstruction [Unknown]
  - Large intestinal stenosis [Unknown]
  - Proctitis ulcerative [Unknown]
  - Diverticulum [Unknown]
  - Large intestine polyp [Unknown]
  - Klebsiella infection [Unknown]
  - Stress [Unknown]
  - Peptic ulcer [Unknown]
  - Inflammatory bowel disease [Unknown]
  - Haemorrhoids [Recovering/Resolving]
  - Crohn^s disease [Unknown]
  - Blood triglycerides increased [Unknown]
  - Headache [Unknown]
  - Obesity [Unknown]

NARRATIVE: CASE EVENT DATE: 199102
